FAERS Safety Report 4449353-9 (Version None)
Quarter: 2004Q3

REPORT INFORMATION
  Report Type: 
  Country: None (occurrence: None)
  Receive Date: 20040910
  Receipt Date: 20040825
  Transmission Date: 20050211
  Serious: Yes (Other)
  Sender: FDA-Public Use
  Company Number: 8006825

PATIENT

DRUGS (1)
  1. KEPPRA [Suspect]
     Dates: start: 20040101, end: 20040101

REACTIONS (2)
  - LABORATORY TEST ABNORMAL [None]
  - NEUTROPENIA [None]
